FAERS Safety Report 9157774 (Version 1)
Quarter: 2013Q1

REPORT INFORMATION
  Report Type: Spontaneous
  Country: US (occurrence: None)
  Receive Date: 20130311
  Receipt Date: 20130311
  Transmission Date: 20140127
  Serious: Yes (Other)
  Sender: FDA-Public Use
  Company Number: None

PATIENT
  Age: 60 Year
  Sex: Male
  Weight: 95.26 kg

DRUGS (1)
  1. ALPRAZOLAM [Suspect]
     Indication: GENERALISED ANXIETY DISORDER
     Route: 048
     Dates: start: 20130212, end: 20130309

REACTIONS (9)
  - Treatment noncompliance [None]
  - Incorrect dose administered [None]
  - Malaise [None]
  - Headache [None]
  - Nausea [None]
  - Dizziness [None]
  - Dyspnoea [None]
  - Blood pressure increased [None]
  - Product quality issue [None]
